FAERS Safety Report 4704367-6 (Version None)
Quarter: 2005Q2

REPORT INFORMATION
  Report Type: 
  Country: None (occurrence: None)
  Receive Date: 20050630
  Receipt Date: 20050630
  Transmission Date: 20051028
  Serious: No
  Sender: FDA-Public Use
  Company Number: None

PATIENT
  Age: 74 Year
  Sex: Male

DRUGS (1)
  1. BACTRIM [Suspect]
     Indication: BRONCHITIS
     Dosage: 1 BID X 10 D

REACTIONS (2)
  - NAUSEA [None]
  - VOMITING [None]
